FAERS Safety Report 16705753 (Version 1)
Quarter: 2019Q3

REPORT INFORMATION
  Report Type: Report from Study
  Country: BR (occurrence: BR)
  Receive Date: 20190815
  Receipt Date: 20190815
  Transmission Date: 20191004
  Serious: Yes (Other)
  Sender: FDA-Public Use
  Company Number: BR-VIIV HEALTHCARE LIMITED-B0598106A

PATIENT
  Age: 7 Month
  Sex: Female

DRUGS (5)
  1. ZIDOVUDINE. [Suspect]
     Active Substance: ZIDOVUDINE
     Indication: HIV INFECTION CDC CATEGORY C
     Dosage: UNK
     Route: 065
  2. LOPINAVIR+RITONAVIR [Suspect]
     Active Substance: LOPINAVIR\RITONAVIR
     Indication: HIV INFECTION CDC CATEGORY C
     Dosage: UNK
     Route: 065
  3. BCG [Suspect]
     Active Substance: BCG VACCINE
     Indication: PROPHYLAXIS
     Route: 065
  4. STAVUDINE. [Suspect]
     Active Substance: STAVUDINE
     Indication: HIV INFECTION CDC CATEGORY C
  5. LAMIVUDINE. [Suspect]
     Active Substance: LAMIVUDINE
     Indication: HIV INFECTION CDC CATEGORY C
     Dosage: UNK
     Route: 065

REACTIONS (5)
  - Oesophageal stenosis [Unknown]
  - Lymphadenitis [Unknown]
  - Immune reconstitution inflammatory syndrome [Recovered/Resolved]
  - Cytomegalovirus oesophagitis [Unknown]
  - Disseminated Bacillus Calmette-Guerin infection [Recovered/Resolved]

NARRATIVE: CASE EVENT DATE: 2006
